FAERS Safety Report 5445894-6 (Version None)
Quarter: 2007Q3

REPORT INFORMATION
  Report Type: 
  Country: None (occurrence: None)
  Receive Date: 20070907
  Receipt Date: 20070905
  Transmission Date: 20080115
  Serious: Yes (Life-Threatening)
  Sender: FDA-Public Use
  Company Number: PHRM2007FR02131

PATIENT
  Age: 1 Day

DRUGS (1)
  1. SYNTOCINON [Suspect]
     Route: 064

REACTIONS (2)
  - ACIDOSIS [None]
  - RESUSCITATION [None]
